FAERS Safety Report 4750238-9 (Version None)
Quarter: 2005Q3

REPORT INFORMATION
  Report Type: 
  Country: None (occurrence: None)
  Receive Date: 20050823
  Receipt Date: 20050822
  Transmission Date: 20060218
  Serious: Yes (Life-Threatening, Hospitalization)
  Sender: FDA-Public Use
  Company Number: BE-BRISTOL-MYERS SQUIBB COMPANY-13085279

PATIENT
  Age: 61 Year
  Sex: Female

DRUGS (3)
  1. CETUXIMAB [Suspect]
     Route: 042
     Dates: start: 20050707
  2. CAPECITABINE [Suspect]
     Indication: RECTAL CANCER
     Route: 048
     Dates: start: 20050714, end: 20050804
  3. RADIATION THERAPY [Suspect]
     Indication: RECTAL CANCER

REACTIONS (1)
  - COLITIS [None]
